FAERS Safety Report 7488516-5 (Version None)
Quarter: 2011Q2

REPORT INFORMATION
  Report Type: 
  Country: None (occurrence: None)
  Receive Date: 20110511
  Receipt Date: 20110428
  Transmission Date: 20111010
  Serious: Yes (Hospitalization)
  Sender: FDA-Public Use
  Company Number: TPA2011A01723

PATIENT
  Age: 82 Year
  Sex: Male
  Weight: 69.4003 kg

DRUGS (9)
  1. PIOGLITAZONE HCL [Suspect]
     Indication: ISCHAEMIC HEART DISEASE PROPHYLAXIS
     Dosage: 45 MG, 1 IN 1 D, PER ORAL
     Route: 048
     Dates: start: 20081205
  2. PIOGLITAZONE HCL [Suspect]
     Indication: CEREBROVASCULAR ACCIDENT PROPHYLAXIS
     Dosage: 45 MG, 1 IN 1 D, PER ORAL
     Route: 048
     Dates: start: 20081205
  3. PROTONIX [Concomitant]
  4. PLAVIX [Concomitant]
  5. BACLOFE (BACLOFEN) [Concomitant]
  6. PANTOPRAZOLE [Concomitant]
  7. ADULT BABY ASPIRIN (ACETYLSALICYLIC ACID) [Concomitant]
  8. FLOMAX (TAMUSULOSIN HYDROCHLORIDE) [Concomitant]
  9. FINASTERIDE [Concomitant]

REACTIONS (4)
  - BACK PAIN [None]
  - SPINAL COMPRESSION FRACTURE [None]
  - INTERVERTEBRAL DISC PROTRUSION [None]
  - LUMBAR SPINAL STENOSIS [None]
